FAERS Safety Report 4310112-9 (Version None)
Quarter: 2004Q1

REPORT INFORMATION
  Report Type: 
  Country: None (occurrence: None)
  Receive Date: 20040227
  Receipt Date: 20031231
  Transmission Date: 20041129
  Serious: No
  Sender: FDA-Public Use
  Company Number: FABR-10423

PATIENT
  Age: 45 Year
  Sex: Male
  Weight: 90.4 kg

DRUGS (15)
  1. FABRAZYME [Suspect]
     Indication: FABRY'S DISEASE
     Dosage: 1 MG/KG Q2WKS IV
     Route: 042
     Dates: start: 20030825
  2. DARVOCET-N 100 [Concomitant]
  3. CELLCEPT [Concomitant]
  4. PROGRAF [Concomitant]
  5. PREDNISONE [Concomitant]
  6. COLACE [Concomitant]
  7. PAXIL [Concomitant]
  8. LIPITOR [Concomitant]
  9. NORVASC [Concomitant]
  10. POTASSIUM PHOSPHATES [Concomitant]
  11. MGO2 [Concomitant]
  12. FLONASE [Concomitant]
  13. VITAMIN CAP [Concomitant]
  14. PRILOSEC [Concomitant]
  15. VASOTEC [Concomitant]

REACTIONS (11)
  - ARTHRALGIA [None]
  - DYSKINESIA [None]
  - ECCHYMOSIS [None]
  - FALL [None]
  - FEELING ABNORMAL [None]
  - HEADACHE [None]
  - LIBIDO DECREASED [None]
  - MUSCLE CRAMP [None]
  - NIGHTMARE [None]
  - PARAESTHESIA [None]
  - PYREXIA [None]
